FAERS Safety Report 10870263 (Version 2)
Quarter: 2015Q2

REPORT INFORMATION
  Report Type: Spontaneous
  Country: JP (occurrence: JP)
  Receive Date: 20150226
  Receipt Date: 20150409
  Transmission Date: 20150821
  Serious: Yes (Death, Other)
  Sender: FDA-Public Use
  Company Number: JP-INCYTE CORPORATION-2015IN000678

PATIENT
  Age: 35 Year
  Sex: Male

DRUGS (1)
  1. JAKAFI [Suspect]
     Active Substance: RUXOLITINIB
     Indication: MYELOFIBROSIS
     Dosage: 5 MG, BID
     Route: 048
     Dates: start: 20141022, end: 20150201

REACTIONS (6)
  - Portal hypertension [Fatal]
  - Oesophageal varices haemorrhage [Recovered/Resolved]
  - Hepatic function abnormal [Unknown]
  - Hepatopulmonary syndrome [Fatal]
  - Blood bilirubin increased [Unknown]
  - Oedema [Unknown]

NARRATIVE: CASE EVENT DATE: 20150201
